FAERS Safety Report 6475087-5 (Version None)
Quarter: 2009Q4

REPORT INFORMATION
  Report Type: 
  Country: None (occurrence: None)
  Receive Date: 20091204
  Receipt Date: 20090311
  Transmission Date: 20100525
  Serious: Yes (Death, Other)
  Sender: FDA-Public Use
  Company Number: US-ELI_LILLY_AND_COMPANY-US200903002884

PATIENT
  Sex: Female

DRUGS (14)
  1. PROZAC [Suspect]
     Dosage: UNK, UNKNOWN
     Route: 048
  2. OPANA [Concomitant]
     Indication: BACK PAIN
     Dosage: 10 MG, 2/D
     Route: 048
     Dates: start: 20070619, end: 20090113
  3. ALPRAZOLAM [Concomitant]
     Dosage: 1 MG, AS NEEDED
     Route: 048
  4. PROMETHAZINE [Concomitant]
     Dosage: 25 MG, AS NEEDED
     Route: 048
  5. ZOLPIDEM [Concomitant]
     Indication: INSOMNIA
     Dosage: 10 MG, UNKNOWN
     Route: 048
  6. TOPAMAX [Concomitant]
     Indication: INTERCOSTAL NEURALGIA
     Dosage: 50 MG, 2/D
     Route: 048
  7. MACROBID [Concomitant]
     Dosage: UNK, UNKNOWN
     Route: 065
  8. NEXIUM [Concomitant]
     Dosage: 40 MG, UNKNOWN
     Route: 065
  9. PROTONIX [Concomitant]
     Dosage: UNK, UNKNOWN
     Route: 048
  10. DIFLUCAN [Concomitant]
     Dosage: UNK, UNKNOWN
     Route: 065
  11. PHENERGAN HCL [Concomitant]
     Dosage: UNK, UNKNOWN
     Route: 065
  12. AMBIEN [Concomitant]
     Dosage: UNK, UNKNOWN
     Route: 065
  13. ZANAFLEX [Concomitant]
     Dosage: UNK, UNKNOWN
     Route: 065
  14. CYCLOBENZAPRINE [Concomitant]
     Dosage: UNK, UNKNOWN
     Route: 065

REACTIONS (3)
  - CARDIAC ARREST [None]
  - CHEST PAIN [None]
  - UNRESPONSIVE TO STIMULI [None]
